FAERS Safety Report 8970945 (Version 1)
Quarter: 2012Q4

REPORT INFORMATION
  Report Type: 
  Country: US (occurrence: US)
  Receive Date: 20121217
  Receipt Date: 20121217
  Transmission Date: 20130627
  Serious: No
  Sender: FDA-Public Use
  Company Number: US-TEVA-373311USA

PATIENT
  Age: 86 Year
  Sex: Male

DRUGS (2)
  1. QNASL [Suspect]
     Indication: RHINITIS ALLERGIC
     Dosage: QD
     Route: 045
     Dates: start: 20121127
  2. QNASL [Suspect]
     Indication: RHINITIS PERENNIAL

REACTIONS (1)
  - Incorrect route of drug administration [Recovered/Resolved]
